FAERS Safety Report 14934091 (Version 2)
Quarter: 2018Q2

REPORT INFORMATION
  Report Type: Spontaneous
  Country: US (occurrence: US)
  Receive Date: 20180524
  Receipt Date: 20180615
  Transmission Date: 20180711
  Serious: Yes (Hospitalization)
  Sender: FDA-Public Use
  Company Number: US-JNJFOC-20180528651

PATIENT
  Sex: Male

DRUGS (14)
  1. HYDROXYCHLOROQUINE [Concomitant]
     Active Substance: HYDROXYCHLOROQUINE
  2. ALLOPURINOL. [Concomitant]
     Active Substance: ALLOPURINOL
  3. DAPSONE. [Concomitant]
     Active Substance: DAPSONE
  4. CYANOCOBALAMIN. [Concomitant]
     Active Substance: CYANOCOBALAMIN
  5. FOLIC ACID. [Concomitant]
     Active Substance: FOLIC ACID
  6. IMBRUVICA [Suspect]
     Active Substance: IBRUTINIB
     Indication: PRODUCT USED FOR UNKNOWN INDICATION
     Route: 065
  7. ATORVASTATIN [Concomitant]
     Active Substance: ATORVASTATIN
  8. COREG [Concomitant]
     Active Substance: CARVEDILOL
  9. NEPHROCAPS [Concomitant]
     Active Substance: ASCORBIC ACID\BIOTIN\CYANOCOBALAMIN\FOLIC ACID\NIACIN\PANTOTHENIC ACID\PYRIDOXINE\RIBOFLAVIN\THIAMINE
  10. ACYCLOVIR. [Concomitant]
     Active Substance: ACYCLOVIR
  11. PREDNISONE. [Concomitant]
     Active Substance: PREDNISONE
  12. TORSEMIDE. [Concomitant]
     Active Substance: TORSEMIDE
  13. FLONASE [Concomitant]
     Active Substance: FLUTICASONE PROPIONATE
  14. BISACODYL. [Concomitant]
     Active Substance: BISACODYL

REACTIONS (1)
  - Hospitalisation [Unknown]
